FAERS Safety Report 5500870-X (Version None)
Quarter: 2007Q4

REPORT INFORMATION
  Report Type: 
  Country: None (occurrence: None)
  Receive Date: 20071029
  Receipt Date: 20071018
  Transmission Date: 20080405
  Serious: Yes (Disabling)
  Sender: FDA-Public Use
  Company Number: GB-JNJFOC-20071005479

PATIENT
  Age: 43 Year
  Sex: Female
  Weight: 132.9 kg

DRUGS (7)
  1. REMICADE [Suspect]
     Dosage: SECOND DOSE
     Route: 042
  2. REMICADE [Suspect]
     Indication: NAIL PSORIASIS
     Dosage: FIRST DOSE
     Route: 042
  3. GLIMEPIRIDE [Concomitant]
  4. MELOXICAM [Concomitant]
  5. METFORMIN HCL [Concomitant]
  6. OMEPRAZOLE [Concomitant]
  7. ACETAMINOPHEN [Concomitant]

REACTIONS (3)
  - GAIT DISTURBANCE [None]
  - PARAESTHESIA [None]
  - SINUSITIS [None]
